FAERS Safety Report 6037487-7 (Version None)
Quarter: 2009Q1

REPORT INFORMATION
  Report Type: 
  Country: None (occurrence: None)
  Receive Date: 20090114
  Receipt Date: 20090105
  Transmission Date: 20090719
  Serious: Yes (Hospitalization)
  Sender: FDA-Public Use
  Company Number: US-ELI_LILLY_AND_COMPANY-US200901000319

PATIENT
  Sex: Female
  Weight: 104.31 kg

DRUGS (9)
  1. BYETTA [Suspect]
     Indication: TYPE 2 DIABETES MELLITUS
     Dosage: 5 UG, 2/D
     Route: 058
     Dates: start: 20050601, end: 20050701
  2. BYETTA [Suspect]
     Dosage: 10 UG, 2/D
     Route: 058
     Dates: start: 20050701
  3. SPIRONOLACTONE [Concomitant]
     Indication: POLYURIA
     Dosage: 50 MG, DAILY (1/D)
  4. POTASSIUM CHLORIDE [Concomitant]
     Indication: POLYURIA
     Dosage: 10 MEQ, DAILY (1/D)
  5. HYDROCHLOROTHIAZIDE [Concomitant]
     Indication: POLYURIA
     Dosage: 12.5 MG, DAILY (1/D)
  6. FUROSEMIDE [Concomitant]
     Indication: POLYURIA
     Dosage: 40 MG, 2/D
  7. SYNTHROID [Concomitant]
     Indication: THYROID DISORDER
     Dosage: 0.1 MG, DAILY (1/D)
  8. NEXIUM [Concomitant]
     Indication: GASTRIC DISORDER
     Dosage: 40 MG, 2/D
  9. HUMULIN N [Concomitant]
     Indication: TYPE 2 DIABETES MELLITUS

REACTIONS (5)
  - HERPES ZOSTER [None]
  - OSTEOARTHRITIS [None]
  - PAIN [None]
  - PULMONARY EMBOLISM [None]
  - RESTLESS LEGS SYNDROME [None]
